FAERS Safety Report 22362324 (Version 1)
Quarter: 2023Q2

REPORT INFORMATION
  Report Type: Spontaneous
  Country: RU (occurrence: RU)
  Receive Date: 20230524
  Receipt Date: 20230524
  Transmission Date: 20230722
  Serious: Yes (Other)
  Sender: FDA-Public Use
  Company Number: RU-FreseniusKabi-FK202306851

PATIENT
  Age: 41 Year
  Sex: Female

DRUGS (4)
  1. CARBOPLATIN [Suspect]
     Active Substance: CARBOPLATIN
     Indication: Ovarian cancer stage IV
     Dosage: AUC 6 I.V. FOR 1 HOUR ON DAY 1 OF THE 21-DAY COURSE
     Route: 042
  2. CARBOPLATIN [Suspect]
     Active Substance: CARBOPLATIN
     Dosage: 6 COURSES, AUC 5 I.V. FOR 1 HOUR ON DAY 1 OF THE 21-DAY COURSE
     Route: 042
     Dates: start: 20180511
  3. PACLITAXEL [Suspect]
     Active Substance: PACLITAXEL
     Indication: Ovarian cancer stage IV
     Dosage: 6 COURSES, 175 MG/M2 I.V. FOR 3 HOURS ON DAY 1 OF THE 21-DAY COURSE
     Route: 042
     Dates: start: 20180511
  4. PACLITAXEL [Suspect]
     Active Substance: PACLITAXEL
     Dosage: 175 MG/M2 I.V. FOR 3 HOURS ON DAY 1 OF THE 21-DAY COURSE
     Route: 042

REACTIONS (2)
  - Dilated cardiomyopathy [Recovering/Resolving]
  - Cardiac failure congestive [Recovering/Resolving]
